FAERS Safety Report 8540697-8 (Version None)
Quarter: 2012Q3

REPORT INFORMATION
  Report Type: 
  Country: None (occurrence: None)
  Receive Date: 20120726
  Receipt Date: 20120717
  Transmission Date: 20120928
  Serious: Yes (Hospitalization)
  Sender: FDA-Public Use
  Company Number: FR-JNJFOC-20120709786

PATIENT
  Age: 34 Year
  Sex: Female

DRUGS (4)
  1. POLARAMINE [Concomitant]
     Indication: PREMEDICATION
     Route: 065
  2. REMICADE [Suspect]
     Route: 042
  3. REMICADE [Suspect]
     Dosage: 4TH CYCLE
     Route: 042
     Dates: start: 20120401
  4. REMICADE [Suspect]
     Indication: PSORIATIC ARTHROPATHY
     Dosage: 5TH CYCLE
     Route: 042
     Dates: start: 20120601, end: 20120601

REACTIONS (9)
  - INFUSION RELATED REACTION [None]
  - ABDOMINAL PAIN [None]
  - EYELID OEDEMA [None]
  - NAUSEA [None]
  - DYSPNOEA [None]
  - PHARYNGEAL OEDEMA [None]
  - HEART RATE INCREASED [None]
  - OXYGEN SATURATION DECREASED [None]
  - RASH [None]
